FAERS Safety Report 15826332 (Version 4)
Quarter: 2019Q2

REPORT INFORMATION
  Report Type: Spontaneous
  Country: PT (occurrence: PT)
  Receive Date: 20190115
  Receipt Date: 20190620
  Transmission Date: 20190711
  Serious: Yes (Other)
  Sender: FDA-Public Use
  Company Number: PHHY2019PT004086

PATIENT
  Age: 80 Year
  Sex: Male

DRUGS (2)
  1. AMOXICILLIN + CLAVULANATE POTASSIUM [Suspect]
     Active Substance: AMOXICILLIN\CLAVULANATE POTASSIUM
     Indication: NOSOCOMIAL INFECTION
  2. AMOXICILLIN + CLAVULANATE POTASSIUM [Suspect]
     Active Substance: AMOXICILLIN\CLAVULANATE POTASSIUM
     Indication: ENTEROCOCCAL INFECTION
     Dosage: UNK
     Route: 065

REACTIONS (7)
  - Dermatitis bullous [Recovering/Resolving]
  - Generalised erythema [Recovering/Resolving]
  - Pemphigoid [Recovered/Resolved]
  - Hypersensitivity [Recovering/Resolving]
  - Rash pruritic [Recovering/Resolving]
  - Skin reaction [Recovering/Resolving]
  - Rash generalised [Recovering/Resolving]
